FAERS Safety Report 11380013 (Version 1)
Quarter: 2015Q3

REPORT INFORMATION
  Report Type: Spontaneous
  Country: US (occurrence: US)
  Receive Date: 20150814
  Receipt Date: 20150814
  Transmission Date: 20151125
  Serious: No
  Sender: FDA-Public Use
  Company Number: US-ASTRAZENECA-2015SE62123

PATIENT
  Age: 29495 Day
  Sex: Female
  Weight: 65.8 kg

DRUGS (5)
  1. TRAMADOL. [Concomitant]
     Active Substance: TRAMADOL
     Indication: PAIN
     Route: 048
  2. SYNTHROID [Concomitant]
     Active Substance: LEVOTHYROXINE SODIUM
     Indication: THYROID DISORDER
     Route: 048
  3. BENOCAR [Concomitant]
     Indication: BLOOD PRESSURE ABNORMAL
     Route: 048
  4. CRESTOR [Suspect]
     Active Substance: ROSUVASTATIN CALCIUM
     Indication: BLOOD PRESSURE ABNORMAL
     Route: 048
  5. SERTRALINE [Concomitant]
     Active Substance: SERTRALINE HYDROCHLORIDE
     Indication: ANTIDEPRESSANT THERAPY
     Route: 048

REACTIONS (6)
  - Memory impairment [Unknown]
  - Drug dose omission [Unknown]
  - Intentional product misuse [Unknown]
  - Head discomfort [Unknown]
  - Osteoarthritis [Unknown]
  - Product use issue [Unknown]

NARRATIVE: CASE EVENT DATE: 201506
